FAERS Safety Report 20659369 (Version 1)
Quarter: 2022Q1

REPORT INFORMATION
  Report Type: Spontaneous
  Country: US (occurrence: US)
  Receive Date: 20220331
  Receipt Date: 20220331
  Transmission Date: 20220424
  Serious: No
  Sender: FDA-Public Use
  Company Number: US-PFIZER INC-202200349157

PATIENT
  Age: 72 Year
  Sex: Female

DRUGS (4)
  1. IBRANCE [Interacting]
     Active Substance: PALBOCICLIB
     Indication: Breast cancer metastatic
     Dosage: 120 MG
     Dates: start: 2016, end: 2016
  2. IBRANCE [Interacting]
     Active Substance: PALBOCICLIB
     Dosage: 100 MG, CYCLIC (EVERY DAY FOR 21 DAYS THEN OFF FOR 7 DAYS)
     Dates: start: 2016
  3. OMEPRAZOLE MAGNESIUM [Interacting]
     Active Substance: OMEPRAZOLE MAGNESIUM
     Indication: Abdominal discomfort
     Dosage: 20 MG, 1X/DAY
     Route: 048
     Dates: start: 2017
  4. LETROZOLE [Concomitant]
     Active Substance: LETROZOLE
     Indication: Oestrogen receptor assay positive
     Dosage: 2.5 MG, 1X/DAY
     Route: 048
     Dates: start: 2016

REACTIONS (10)
  - Dyspepsia [Unknown]
  - Dry skin [Unknown]
  - Dry eye [Recovering/Resolving]
  - Drug interaction [Unknown]
  - Nasal dryness [Unknown]
  - Epistaxis [Unknown]
  - Cough [Unknown]
  - Neoplasm progression [Unknown]
  - Feeling abnormal [Unknown]
  - Alopecia [Unknown]

NARRATIVE: CASE EVENT DATE: 20170101
